FAERS Safety Report 17598906 (Version 1)
Quarter: 2020Q1

REPORT INFORMATION
  Report Type: Spontaneous
  Country: US (occurrence: US)
  Receive Date: 20200330
  Receipt Date: 20200330
  Transmission Date: 20200409
  Serious: Yes (Hospitalization)
  Sender: FDA-Public Use
  Company Number: US-INDIVIOR LIMITED-INDV-123272-2020

PATIENT
  Sex: Male

DRUGS (1)
  1. SUBLOCADE [Suspect]
     Active Substance: BUPRENORPHINE
     Indication: DRUG DEPENDENCE
     Dosage: 300 MILLIGRAM, QMO
     Route: 058

REACTIONS (4)
  - Nausea [Not Recovered/Not Resolved]
  - Chills [Not Recovered/Not Resolved]
  - Chromaturia [Not Recovered/Not Resolved]
  - Vomiting [Not Recovered/Not Resolved]
